FAERS Safety Report 17094057 (Version 1)
Quarter: 2019Q4

REPORT INFORMATION
  Report Type: Spontaneous
  Country: FR (occurrence: ES)
  Receive Date: 20191129
  Receipt Date: 20191129
  Transmission Date: 20200122
  Serious: Yes (Death, Hospitalization)
  Sender: FDA-Public Use
  Company Number: FR-MYLANLABS-2019M1115667

PATIENT
  Age: 86 Year
  Sex: Female

DRUGS (1)
  1. AMIODARONE [Suspect]
     Active Substance: AMIODARONE
     Indication: VENTRICULAR EXTRASYSTOLES
     Dosage: 5 DAYS PER WEEK
     Route: 065

REACTIONS (7)
  - Cardiac arrest [Fatal]
  - Macroglossia [Unknown]
  - Electrocardiogram repolarisation abnormality [Unknown]
  - Hypotension [Fatal]
  - Ileus paralytic [Unknown]
  - Madarosis [Unknown]
  - Myxoedema coma [Fatal]
